FAERS Safety Report 7030211-0 (Version None)
Quarter: 2010Q4

REPORT INFORMATION
  Report Type: 
  Country: None (occurrence: None)
  Receive Date: 20101006
  Receipt Date: 20100927
  Transmission Date: 20110411
  Serious: Yes (Hospitalization)
  Sender: FDA-Public Use
  Company Number: CA-US-EMD SERONO, INC.-230047J10CAN

PATIENT
  Sex: Female

DRUGS (20)
  1. REBIF [Suspect]
     Indication: MULTIPLE SCLEROSIS
     Dates: start: 20040122, end: 20090603
  2. REBIF [Suspect]
     Dates: start: 20090928
  3. LITHIUM [Suspect]
  4. LITHIUM [Suspect]
  5. IRON SUPPLEMENT [Concomitant]
  6. APO-PROPANOLOL [Concomitant]
  7. LYRICA [Concomitant]
  8. EPIVAL [Concomitant]
  9. DETRO-LA [Concomitant]
  10. LIPITOR [Concomitant]
  11. LORAZEPAM [Concomitant]
  12. RANIPRIL [RAMIPRIL] [Concomitant]
  13. PANTOPRAZOLE [Concomitant]
  14. SYNTHROID [Concomitant]
  15. RATIO-METFORMIN [Concomitant]
  16. LAMOTRIGINE [Concomitant]
  17. ALEMDRONATE [ALENDRONATE] [Concomitant]
  18. AMANTADINE [Concomitant]
  19. CALCIUM GLUCONATE [Concomitant]
  20. ASAPHEM [Concomitant]

REACTIONS (7)
  - ANAEMIA [None]
  - BLOOD PRESSURE INCREASED [None]
  - CONVULSION [None]
  - FATIGUE [None]
  - LOSS OF CONSCIOUSNESS [None]
  - MASS [None]
  - MUSCULAR WEAKNESS [None]
